FAERS Safety Report 15084696 (Version 8)
Quarter: 2019Q3

REPORT INFORMATION
  Report Type: Report from Study
  Country: CN (occurrence: CN)
  Receive Date: 20180628
  Receipt Date: 20190716
  Transmission Date: 20191004
  Serious: Yes (Death, Other)
  Sender: FDA-Public Use
  Company Number: CN-AMGEN-CHNCT2018087204

PATIENT
  Age: 48 Year
  Sex: Male
  Weight: 69 kg

DRUGS (23)
  1. POTASSIUM CHLORIDE. [Concomitant]
     Active Substance: POTASSIUM CHLORIDE
     Dosage: 1 GRAM AND  10-60 MILLITRE (10 %)
     Dates: start: 20180510, end: 20180710
  2. OMEPRAZOLE MAGNESIUM. [Concomitant]
     Active Substance: OMEPRAZOLE MAGNESIUM
     Dosage: 20 MILLIGRAM
     Route: 048
     Dates: start: 20180509, end: 20180510
  3. BLINATUMOMAB [Suspect]
     Active Substance: BLINATUMOMAB
     Indication: B PRECURSOR TYPE ACUTE LEUKAEMIA
     Dosage: 28 MICROGRAM, QD
     Route: 042
     Dates: start: 20180509, end: 20180608
  4. VITAMIN B6 [Concomitant]
     Active Substance: PYRIDOXINE HYDROCHLORIDE
     Dosage: 50 MILLIGRAM
     Route: 042
     Dates: start: 20180510, end: 20180514
  5. PANTOPRAZOLE [Concomitant]
     Active Substance: PANTOPRAZOLE
     Dosage: 40 MILLIGRAM
     Route: 048
     Dates: start: 20180509, end: 20180509
  6. COMPOUND LIDOCAINE HYDROCHLORIDE [Concomitant]
     Dosage: 10 MILLILITER
     Route: 037
     Dates: start: 20180424, end: 20180424
  7. CYTARABINE. [Concomitant]
     Active Substance: CYTARABINE
     Dosage: 50 MILLIGRAM
     Dates: start: 20180424, end: 20180611
  8. INSULIN INJECTION [Concomitant]
     Active Substance: INSULIN NOS
     Dosage: 4 INTERNATIONAL UNIT- 4-8 UNK
     Route: 042
     Dates: start: 20180510, end: 20180515
  9. HUMAN ALBUMIN [Concomitant]
     Active Substance: ALBUMIN HUMAN
     Dosage: 20 GRAM
     Route: 042
     Dates: start: 20180510, end: 20180629
  10. TORSEMIDE. [Concomitant]
     Active Substance: TORSEMIDE
     Dosage: 20 MILLIGRAM
     Route: 042
     Dates: start: 20180510, end: 20180514
  11. FLUCONAZOLE. [Concomitant]
     Active Substance: FLUCONAZOLE
     Dosage: 150 MILLIGRAM
     Route: 048
     Dates: start: 20180509, end: 20180611
  12. CALCIUM GLUCONATE. [Concomitant]
     Active Substance: CALCIUM GLUCONATE
     Dosage: 1 GRAM
     Route: 042
     Dates: start: 20180527, end: 20180527
  13. FILGRASTIM [Concomitant]
     Active Substance: FILGRASTIM
     Dosage: 200-300 MICROGRAM
     Route: 058
     Dates: start: 20180510, end: 20180527
  14. LIDOCAINE. [Concomitant]
     Active Substance: LIDOCAINE
     Dosage: 10 MILLIGRAM AND 10 MILLITRE
     Dates: start: 20180503, end: 20180611
  15. SODIUM BICARBONATE. [Concomitant]
     Active Substance: SODIUM BICARBONATE
     Dosage: 125 MILLITRE AND 1 GRAM
     Dates: start: 20180509, end: 20180719
  16. ESTAZOLAM. [Concomitant]
     Active Substance: ESTAZOLAM
     Dosage: 1-2 MILLIGRAM
     Route: 048
     Dates: start: 20180511, end: 20180611
  17. POLYENE PHOSPHATIDYLCHOLINE [Concomitant]
     Active Substance: PHOSPHOLIPID
     Dosage: 465 MILLIGRAM
     Route: 042
     Dates: start: 20180510, end: 20180706
  18. ADEMETIONINE 1,4-BUTANEDISULFONATE [Concomitant]
     Dosage: 1000 MILLIGRAM
     Route: 042
     Dates: start: 20180510, end: 20180515
  19. ACICLOVIR [Concomitant]
     Active Substance: ACYCLOVIR
     Dosage: 400 MILLIGRAM
     Route: 048
     Dates: start: 20180509, end: 20180611
  20. CALCIUM CARBONATE AND VITAMIN D [Concomitant]
     Active Substance: CALCIUM CARBONATE\VITAMIN D
     Dosage: 600 MILLIGRAM
     Route: 048
     Dates: start: 20180530, end: 20180611
  21. DEXAMETHASONE SODIUM PHOSPHATE. [Concomitant]
     Active Substance: DEXAMETHASONE SODIUM PHOSPHATE
     Dosage: 2-20 MILLIGRAM
     Dates: start: 20180424, end: 20180719
  22. LANSOPRAZOLE. [Concomitant]
     Active Substance: LANSOPRAZOLE
     Dosage: 30 MILLIGRAM
     Route: 042
     Dates: start: 20180510, end: 20180720
  23. DEXAMETHASON [Concomitant]
     Active Substance: DEXAMETHASONE
     Dosage: 5-20 MILLIGRAM
     Route: 042
     Dates: start: 20180510, end: 20180611

REACTIONS (1)
  - Pneumonitis [Fatal]

NARRATIVE: CASE EVENT DATE: 20180625
